FAERS Safety Report 8314231-1 (Version None)
Quarter: 2012Q2

REPORT INFORMATION
  Report Type: 
  Country: None (occurrence: None)
  Receive Date: 20120426
  Receipt Date: 20120418
  Transmission Date: 20120825
  Serious: Yes (Other)
  Sender: FDA-Public Use
  Company Number: JP-SANOFI-AVENTIS-2012SA026671

PATIENT
  Age: 67 Year
  Sex: Male

DRUGS (6)
  1. DABIGATRAN ETEXILATE [Concomitant]
     Indication: CARDIAC FAILURE CHRONIC
  2. TAXOTERE [Suspect]
     Indication: NON-SMALL CELL LUNG CANCER
     Route: 042
     Dates: start: 20120119, end: 20120216
  3. CLARITHROMYCIN [Concomitant]
     Indication: CHRONIC SINUSITIS
  4. BISOPROLOL FUMARATE [Concomitant]
     Indication: CARDIAC FAILURE CHRONIC
  5. SEREVENT [Concomitant]
     Indication: CHRONIC OBSTRUCTIVE PULMONARY DISEASE
  6. SPIRIVA [Concomitant]
     Indication: CHRONIC OBSTRUCTIVE PULMONARY DISEASE

REACTIONS (1)
  - URINARY RETENTION [None]
